FAERS Safety Report 5152382-3 (Version None)
Quarter: 2006Q4

REPORT INFORMATION
  Report Type: 
  Country: None (occurrence: None)
  Receive Date: 20061116
  Receipt Date: 20061110
  Transmission Date: 20070319
  Serious: Yes (Other)
  Sender: FDA-Public Use
  Company Number: BR-JNJFOC-20061103137

PATIENT
  Age: 37 Year
  Sex: Female
  Weight: 65 kg

DRUGS (1)
  1. ACETAMINOPHEN W/ CODEINE [Suspect]
     Indication: MUSCULOSKELETAL PAIN
     Route: 048

REACTIONS (2)
  - BACK PAIN [None]
  - CHEST PAIN [None]
